FAERS Safety Report 17460964 (Version 1)
Quarter: 2020Q1

REPORT INFORMATION
  Report Type: Spontaneous
  Country: US (occurrence: US)
  Receive Date: 20200226
  Receipt Date: 20200226
  Transmission Date: 20200409
  Serious: No
  Sender: FDA-Public Use
  Company Number: US-FERRINGPH-2019FE00254

PATIENT
  Sex: Male

DRUGS (1)
  1. DESMOPRESSIN [Suspect]
     Active Substance: DESMOPRESSIN
     Indication: NOCTURIA
     Dosage: UNK
     Route: 048
     Dates: end: 201901

REACTIONS (1)
  - Weight increased [Recovered/Resolved]
